FAERS Safety Report 5727311-1 (Version None)
Quarter: 2008Q2

REPORT INFORMATION
  Report Type: 
  Country: None (occurrence: None)
  Receive Date: 20080505
  Receipt Date: 20080424
  Transmission Date: 20081010
  Serious: Yes (Other)
  Sender: FDA-Public Use
  Company Number: GB-AMGEN-US274232

PATIENT
  Sex: Female
  Weight: 70.2 kg

DRUGS (10)
  1. ENBREL [Suspect]
     Indication: DRUG USE FOR UNKNOWN INDICATION
     Route: 058
     Dates: start: 20080130
  2. PREDNISOLONE [Concomitant]
     Dosage: 4 MG FREQUENCY UNKNOWN
     Route: 048
     Dates: start: 20071101
  3. HUMIRA [Concomitant]
     Dosage: 40 MG FREQUENCY UNKNOWN
     Route: 065
     Dates: end: 20071101
  4. FUROSEMIDE [Concomitant]
     Dosage: UNKNOWN
     Route: 065
  5. ASPIRIN [Concomitant]
     Dosage: UNKNOWN
     Route: 048
  6. CALCICHEW [Concomitant]
     Dosage: UNKNOWN
     Route: 065
     Dates: start: 20071101
  7. PANTOPRAZOLE SODIUM [Concomitant]
     Dosage: UNKNOWN
     Route: 065
  8. MELOXICAM [Concomitant]
     Dosage: UNKNOWN
     Route: 065
  9. METHOTREXATE [Concomitant]
     Dosage: 7.5 MG FREQUENCY UNKNOWN
     Route: 048
     Dates: start: 20080130
  10. RISEDRONATE SODIUM [Concomitant]
     Dosage: UNKNOWN
     Route: 048
     Dates: start: 20071101

REACTIONS (4)
  - INJECTION SITE BRUISING [None]
  - INJECTION SITE ERYTHEMA [None]
  - INJECTION SITE PRURITUS [None]
  - INJECTION SITE SWELLING [None]
